FAERS Safety Report 7548686-7 (Version None)
Quarter: 2011Q2

REPORT INFORMATION
  Report Type: 
  Country: None (occurrence: None)
  Receive Date: 20110615
  Receipt Date: 20110608
  Transmission Date: 20111010
  Serious: Yes (Other)
  Sender: FDA-Public Use
  Company Number: US-SANOFI-AVENTIS-2011SA036477

PATIENT
  Sex: Male

DRUGS (2)
  1. LANTUS [Suspect]
     Indication: TYPE 2 DIABETES MELLITUS
     Dosage: DOSE:15 UNIT(S)
     Route: 058
  2. HUMALOG [Concomitant]
     Dosage: SLIDING SCALE

REACTIONS (5)
  - HYPERGLYCAEMIA [None]
  - AMPUTATION [None]
  - CATARACT OPERATION [None]
  - EXPIRED DRUG ADMINISTERED [None]
  - HYPOGLYCAEMIA [None]
